FAERS Safety Report 9844856 (Version 3)
Quarter: 2014Q1

REPORT INFORMATION
  Report Type: Spontaneous
  Country: CA (occurrence: None)
  Receive Date: 20140122
  Receipt Date: 20140207
  Transmission Date: 20141002
  Serious: Yes (Other)
  Sender: FDA-Public Use
  Company Number: AUR-APL-2014-00398

PATIENT
  Age: 78 Year
  Sex: Female

DRUGS (27)
  1. AMLODIPINE [Suspect]
     Indication: HYPERTENSION
  2. PANTOPRAZOLE [Concomitant]
     Indication: PRODUCT USED FOR UNKNOWN INDICATION
     Dosage: (40 MG, 1 D), UNKNOWN)
  3. RISEDRONATE [Concomitant]
     Indication: OSTEOPOROSIS
  4. SIMVASTATIN(SIMVASTATIN) [Concomitant]
     Indication: PRODUCT USED FOR UNKNOWN INDICATION
  5. VALSARTAN [Suspect]
     Indication: HYPERTENSION
  6. METHOCARBAMOL [Concomitant]
     Indication: PRODUCT USED FOR UNKNOWN INDICATION
     Dosage: 800 MG (400 MG,2 IN 1 D)
  7. CALCIUM CARBONATE [Concomitant]
     Indication: PRODUCT USED FOR UNKNOWN INDICATION
     Dosage: UNKNOWN
  8. METFORMIN HYDROCHLORIDE [Suspect]
     Indication: DIABETES MELLITUS
     Dosage: 1000 MG (500 MG, 2 IN 1 D)
  9. FUROSEMID [Concomitant]
     Indication: OEDEMA
  10. ACETYLSALICYLIC ACID [Concomitant]
     Indication: CEREBROVASCULAR ACCIDENT
  11. PRAMIPEXOLE [Concomitant]
     Indication: RESTLESS LEGS SYNDROME
  12. TRAMADOL HYDROCHLORIDE [Concomitant]
     Indication: PAIN
     Dosage: UNKNOWN
  13. ALLOPURINOL [Concomitant]
     Indication: GOUT
  14. CALCIPOTRIENE [Concomitant]
     Indication: PSORIASIS
     Dosage: UNKNOWN
  15. BETAMETHASONE [Concomitant]
     Indication: PSORIASIS
     Dosage: UNKNOWN
  16. ALISKIREN [Suspect]
     Indication: PRODUCT USED FOR UNKNOWN INDICATION
  17. LABETALOL [Suspect]
     Indication: PRODUCT USED FOR UNKNOWN INDICATION
     Dosage: 400 MG (200 MG, 2 IN 1 D)
  18. HYDRALAZINE [Suspect]
     Indication: PRODUCT USED FOR UNKNOWN INDICATION
     Dosage: UNKNOWN
  19. GLICLAZIDE [Suspect]
     Indication: PRODUCT USED FOR UNKNOWN INDICATION
     Dosage: 60 MG (30 MG, 2 IN 1 D)
  20. FLUTICASONE PROPRIONATE NASAL [Concomitant]
     Indication: PRODUCT USED FOR UNKNOWN INDICATION
     Dosage: 4 DOSAGE FORMS (2 DOSAGE FORMS, 2 IN 1 D)
  21. SALBUTAMOL [Concomitant]
     Indication: PRODUCT USED FOR UNKNOWN INDICATION
     Dosage: UNKNOWN
  22. LEVOTHYROXINE [Concomitant]
     Indication: PRODUCT USED FOR UNKNOWN INDICATION
  23. VITAMIN B12 [Concomitant]
     Indication: PRODUCT USED FOR UNKNOWN INDICATION
  24. RANITIDINE [Concomitant]
     Indication: DYSPEPSIA
  25. VITAMIN D(ERGOCALCIFEROL) [Concomitant]
  26. SITAGLIPTIN [Suspect]
  27. PSYLLIUM (PLANTAGO AFRA) [Concomitant]

REACTIONS (11)
  - Blood pressure systolic increased [None]
  - Glycosylated haemoglobin increased [None]
  - Contusion [None]
  - Muscle spasms [None]
  - Oedema peripheral [None]
  - Drug ineffective [None]
  - Abasia [None]
  - Drug administration error [None]
  - Weight decreased [None]
  - Pain in extremity [None]
  - Diabetes mellitus inadequate control [None]
